FAERS Safety Report 8396689-5 (Version None)
Quarter: 2012Q2

REPORT INFORMATION
  Report Type: 
  Country: None (occurrence: None)
  Receive Date: 20120530
  Receipt Date: 20120515
  Transmission Date: 20120825
  Serious: Yes (Other)
  Sender: FDA-Public Use
  Company Number: FR-TEVA-332675ISR

PATIENT
  Age: 47 Year
  Sex: Male

DRUGS (2)
  1. FLUINDIONE [Interacting]
     Dosage: 20 MG/DAY
     Route: 065
  2. CARBAMAZEPINE [Suspect]
     Indication: NEURALGIA
     Dosage: 400 MG/DAY
     Route: 065

REACTIONS (2)
  - DRUG INTERACTION [None]
  - COAGULATION TIME SHORTENED [None]
